FAERS Safety Report 19115556 (Version 1)
Quarter: 2021Q2

REPORT INFORMATION
  Report Type: Spontaneous
  Country: BE (occurrence: BE)
  Receive Date: 20210409
  Receipt Date: 20210409
  Transmission Date: 20210717
  Serious: Yes (Hospitalization)
  Sender: FDA-Public Use
  Company Number: BE-TEVA-2021-BE-1898679

PATIENT
  Age: 24 Year
  Sex: Female
  Weight: 55 kg

DRUGS (2)
  1. DAFALGAN FORTE 1 G [Suspect]
     Active Substance: ACETAMINOPHEN
     Dosage: 40 DOSAGE FORMS
     Route: 048
  2. IBUPROFEN. [Suspect]
     Active Substance: IBUPROFEN
     Dosage: 8 GRAM
     Route: 048

REACTIONS (2)
  - Intentional self-injury [Not Recovered/Not Resolved]
  - Coma [Not Recovered/Not Resolved]
